FAERS Safety Report 5231735-9 (Version None)
Quarter: 2007Q1

REPORT INFORMATION
  Report Type: 
  Country: None (occurrence: None)
  Receive Date: 20070206
  Receipt Date: 20070125
  Transmission Date: 20070707
  Serious: Yes (Death, Other)
  Sender: FDA-Public Use
  Company Number: US-PFIZER INC-2007007668

PATIENT
  Sex: Male
  Weight: 97.5 kg

DRUGS (1)
  1. BEXTRA [Suspect]
     Indication: BACK PAIN
     Dates: start: 20020415, end: 20041206

REACTIONS (1)
  - MYOCARDIAL INFARCTION [None]
